FAERS Safety Report 15499367 (Version 1)
Quarter: 2018Q4

REPORT INFORMATION
  Report Type: Spontaneous
  Country: JP (occurrence: JP)
  Receive Date: 20181015
  Receipt Date: 20181015
  Transmission Date: 20190205
  Serious: Yes (Hospitalization, Other)
  Sender: FDA-Public Use
  Company Number: JP-GLAXOSMITHKLINE-JP2016200596

PATIENT
  Age: 63 Year
  Sex: Female

DRUGS (9)
  1. METHOTREXATE. [Concomitant]
     Active Substance: METHOTREXATE
     Dosage: 6 MG, QW
     Route: 065
  2. BUCILLAMINE [Concomitant]
     Active Substance: BUCILLAMINE
     Dosage: 200 MG, UNK
     Route: 065
  3. LEVOTHYROXINE. [Concomitant]
     Active Substance: LEVOTHYROXINE
     Indication: PRODUCT USED FOR UNKNOWN INDICATION
     Dosage: UNK
     Route: 065
  4. FLUVOXAMINE [Concomitant]
     Active Substance: FLUVOXAMINE
     Indication: FIBROMYALGIA
     Dosage: 25 MG, QD
     Route: 065
  5. DICLOFENAC [Suspect]
     Active Substance: DICLOFENAC
     Indication: PAIN
     Dosage: 100 MG, QD
     Route: 065
  6. PREDNISOLONE. [Concomitant]
     Active Substance: PREDNISOLONE
     Indication: FIBROMYALGIA
     Dosage: 7.5 MG, QD
     Route: 065
  7. METHOTREXATE. [Concomitant]
     Active Substance: METHOTREXATE
     Indication: RHEUMATOID ARTHRITIS
     Dosage: 4 MG, QW
     Route: 065
  8. BUCILLAMINE [Concomitant]
     Active Substance: BUCILLAMINE
     Indication: RHEUMATOID ARTHRITIS
     Dosage: 100 MG, UNK
     Route: 065
  9. SULPIRIDE [Concomitant]
     Active Substance: SULPIRIDE
     Indication: FIBROMYALGIA
     Dosage: 150 MG, QD
     Route: 065

REACTIONS (4)
  - Pain [Recovering/Resolving]
  - Pyrexia [Unknown]
  - Sleep disorder [Unknown]
  - Gastric ulcer [Recovering/Resolving]
